FAERS Safety Report 22159376 (Version 1)
Quarter: 2023Q1

REPORT INFORMATION
  Report Type: Spontaneous
  Country: AT (occurrence: AT)
  Receive Date: 20230331
  Receipt Date: 20230331
  Transmission Date: 20230417
  Serious: No
  Sender: FDA-Public Use
  Company Number: AT-ALKEM LABORATORIES LIMITED-AT-ALKEM-2023-03024

PATIENT
  Age: 70 Year
  Sex: Male

DRUGS (1)
  1. DABIGATRAN ETEXILATE MESYLATE [Suspect]
     Active Substance: DABIGATRAN ETEXILATE MESYLATE
     Indication: Atrial fibrillation
     Dosage: 150 MILLIGRAMS, BID (HE HAD TAKEN THE LAST DOSE ON THE MORNING OF ADMISSION DAY)
     Route: 065

REACTIONS (2)
  - Activated partial thromboplastin time prolonged [Recovering/Resolving]
  - Thrombin time prolonged [Recovering/Resolving]
